FAERS Safety Report 9366299 (Version 1)
Quarter: 2013Q2

REPORT INFORMATION
  Report Type: Spontaneous
  Country: US (occurrence: US)
  Receive Date: 20130625
  Receipt Date: 20130625
  Transmission Date: 20140414
  Serious: No
  Sender: FDA-Public Use
  Company Number: US-GLAXOSMITHKLINE-A0988625A

PATIENT
  Sex: Female

DRUGS (2)
  1. VERAMYST [Suspect]
     Indication: SINUS DISORDER
     Route: 045
     Dates: start: 20120803
  2. ACIPHEX [Concomitant]

REACTIONS (1)
  - Back pain [Unknown]
